FAERS Safety Report 9258384 (Version 1)
Quarter: 2013Q1

REPORT INFORMATION
  Report Type: Spontaneous
  Country: US (occurrence: None)
  Receive Date: 20121212
  Receipt Date: 20121212
  Transmission Date: 20140127
  Serious: No
  Sender: FDA-Public Use
  Company Number: 1210USA011774

PATIENT
  Sex: Male

DRUGS (3)
  1. PEGINTERFERON [Suspect]
     Indication: HEPATITIS C
     Dates: start: 20120925, end: 20121019
  2. REBETOL [Suspect]
     Indication: HEPATITIS C
     Dates: start: 20110925, end: 20121019
  3. VICTRELIS [Suspect]
     Dates: start: 20121016, end: 20121019

REACTIONS (1)
  - Rash [None]
